FAERS Safety Report 24004967 (Version 1)
Quarter: 2024Q2

REPORT INFORMATION
  Report Type: Spontaneous
  Country: US (occurrence: US)
  Receive Date: 20240624
  Receipt Date: 20240624
  Transmission Date: 20240716
  Serious: Yes (Other)
  Sender: FDA-Public Use
  Company Number: US-BAYER-2024A087838

PATIENT
  Age: 36 Year
  Sex: Female

DRUGS (1)
  1. MIRENA [Suspect]
     Active Substance: LEVONORGESTREL
     Dosage: 20?G/DAY
     Route: 015
     Dates: start: 2017, end: 2024

REACTIONS (4)
  - Pregnancy with contraceptive device [None]
  - Device breakage [None]
  - Complication of device removal [None]
  - Drug ineffective [None]

NARRATIVE: CASE EVENT DATE: 20240101
